FAERS Safety Report 8583329-5 (Version None)
Quarter: 2012Q3

REPORT INFORMATION
  Report Type: 
  Country: None (occurrence: None)
  Receive Date: 20120809
  Receipt Date: 20120807
  Transmission Date: 20120928
  Serious: Yes (Death)
  Sender: FDA-Public Use
  Company Number: US-CELGENEUS-163-21880-12062910

PATIENT
  Sex: Male

DRUGS (18)
  1. REVLIMID [Suspect]
     Dosage: 10 MILLIGRAM
     Route: 048
     Dates: start: 20120501, end: 20120101
  2. DEXAMETHASONE [Concomitant]
     Route: 065
  3. FLOMAX [Concomitant]
     Route: 065
  4. HYDROCODONE BITARTRATE [Concomitant]
     Route: 065
  5. VITAMIN D [Concomitant]
     Route: 065
  6. FUROSEMIDE [Concomitant]
     Route: 065
  7. LISINOPRIL [Concomitant]
     Route: 065
  8. FOLIC ACID [Concomitant]
     Route: 065
  9. CALCIUM CARBONATE [Concomitant]
     Route: 065
  10. VITAMIN B COMPLEX CAP [Concomitant]
     Route: 065
  11. REVLIMID [Suspect]
     Indication: MULTIPLE MYELOMA
     Dosage: 25 MILLIGRAM
     Route: 048
     Dates: start: 20090901, end: 20100101
  12. MULTI-VITAMINS [Concomitant]
     Route: 065
  13. VITAMIN-MINERAL COMPOUND TAB [Concomitant]
     Route: 065
  14. PROCRIT [Concomitant]
     Route: 065
  15. THIAMINE HCL [Concomitant]
     Route: 065
  16. REVLIMID [Suspect]
     Dosage: 25 MILLIGRAM
     Route: 048
     Dates: start: 20120301, end: 20120101
  17. REVLIMID [Suspect]
     Dosage: 15 MILLIGRAM
     Route: 048
     Dates: start: 20120401, end: 20120101
  18. LUTEIN [Concomitant]
     Route: 065

REACTIONS (1)
  - MULTIPLE MYELOMA [None]
